FAERS Safety Report 25492735 (Version 1)
Quarter: 2025Q2

REPORT INFORMATION
  Report Type: Spontaneous
  Country: US (occurrence: US)
  Receive Date: 20250630
  Receipt Date: 20250630
  Transmission Date: 20250717
  Serious: No
  Sender: ITALFARMACO SPA
  Company Number: US-ITALFARMACO SPA-2179611

PATIENT
  Age: 33 Year
  Sex: Male
  Weight: 65.08 kg

DRUGS (7)
  1. DUVYZAT [Suspect]
     Active Substance: GIVINOSTAT
     Indication: Duchenne muscular dystrophy
     Dates: start: 20250423
  2. CARVEDILOL [Concomitant]
     Active Substance: CARVEDILOL
  3. VITAMIN D3 [Concomitant]
     Active Substance: CHOLECALCIFEROL
  4. NAPROXEN [Concomitant]
     Active Substance: NAPROXEN
  5. LISINOPRIL [Concomitant]
     Active Substance: LISINOPRIL
  6. EZETIMIBE [Concomitant]
     Active Substance: EZETIMIBE
  7. ESCITALOPRAM [Concomitant]
     Active Substance: ESCITALOPRAM OXALATE

REACTIONS (2)
  - Product dose omission issue [Unknown]
  - Abdominal discomfort [Unknown]
